FAERS Safety Report 8928692 (Version 3)
Quarter: 2013Q1

REPORT INFORMATION
  Report Type: Spontaneous
  Country: US (occurrence: US)
  Receive Date: 20121128
  Receipt Date: 20130220
  Transmission Date: 20140127
  Serious: No
  Sender: FDA-Public Use
  Company Number: US-009507513-1211USA005620

PATIENT
  Age: 61 None
  Sex: Male

DRUGS (3)
  1. PEGINTRON [Suspect]
     Indication: HEPATITIS C
     Dosage: 96 MICROGRAM, QW (USES REDIPEN 20 MCG 1 STANDARD DOSE OF 1)
     Route: 058
     Dates: start: 20120914
  2. RIBAPAK [Suspect]
     Indication: HEPATITIS C
  3. INCIVEK [Suspect]
     Indication: HEPATITIS C
     Dosage: UNK
     Dates: end: 201212

REACTIONS (8)
  - Hypoaesthesia [Not Recovered/Not Resolved]
  - Fatigue [Not Recovered/Not Resolved]
  - Influenza like illness [Unknown]
  - Headache [Unknown]
  - Erythema [Unknown]
  - Local swelling [Unknown]
  - Pruritus [Unknown]
  - White blood cell count decreased [Unknown]
